FAERS Safety Report 9982354 (Version 2)
Quarter: 2014Q1

REPORT INFORMATION
  Report Type: Report from Study
  Country: PR (occurrence: PR)
  Receive Date: 20140307
  Receipt Date: 20140307
  Transmission Date: 20141002
  Serious: No
  Sender: FDA-Public Use
  Company Number: PR-ABBVIE-13P-131-1042748-00

PATIENT
  Sex: Male
  Weight: 88.53 kg

DRUGS (3)
  1. HUMIRA [Suspect]
     Indication: PSORIASIS
     Route: 058
     Dates: start: 201211, end: 2013
  2. INSULIN [Concomitant]
     Indication: DIABETES MELLITUS
     Route: 058
  3. INSULIN [Concomitant]
     Indication: DIABETES MELLITUS
     Route: 048

REACTIONS (4)
  - Drug ineffective [Recovering/Resolving]
  - Adverse event [Unknown]
  - Psoriasis [Unknown]
  - Psoriasis [Recovering/Resolving]
